FAERS Safety Report 8608905-2 (Version None)
Quarter: 2012Q3

REPORT INFORMATION
  Report Type: 
  Country: None (occurrence: None)
  Receive Date: 20120809
  Receipt Date: 20120809
  Transmission Date: 20120928
  Serious: Yes (Other)
  Sender: FDA-Public Use
  Company Number: None

PATIENT
  Sex: Female

DRUGS (1)
  1. XELODA [Suspect]
     Indication: COLON CANCER
     Dosage: 1500MG AM PO  1000MG PM PO
     Route: 048
     Dates: start: 20120628, end: 20120707

REACTIONS (2)
  - PAIN IN EXTREMITY [None]
  - SKIN DISCOLOURATION [None]
